FAERS Safety Report 5878627-X (Version None)
Quarter: 2008Q3

REPORT INFORMATION
  Report Type: 
  Country: None (occurrence: None)
  Receive Date: 20080910
  Receipt Date: 20080825
  Transmission Date: 20090109
  Serious: No
  Sender: FDA-Public Use
  Company Number: 004123

PATIENT
  Age: 61 Year
  Sex: Male

DRUGS (6)
  1. PLETAL [Suspect]
     Indication: CEREBRAL INFARCTION
     Dates: start: 20050802, end: 20080818
  2. AMARYL [Concomitant]
  3. NORVASC [Concomitant]
  4. MS ONSHIPPU (CATAPLASMATA) TAPE (INCLUDING POULTICE) [Concomitant]
  5. FLUITRAN (TRICHLORMETHIAZIDE) TABLET [Concomitant]
  6. MICARDIS [Concomitant]

REACTIONS (4)
  - HAEMATOCRIT DECREASED [None]
  - HAEMOGLOBIN DECREASED [None]
  - LARGE INTESTINE CARCINOMA [None]
  - RED BLOOD CELL COUNT DECREASED [None]
